FAERS Safety Report 8444891-6 (Version None)
Quarter: 2012Q2

REPORT INFORMATION
  Report Type: 
  Country: None (occurrence: None)
  Receive Date: 20120612
  Receipt Date: 20120612
  Transmission Date: 20120825
  Serious: Yes (Hospitalization)
  Sender: FDA-Public Use
  Company Number: None

PATIENT
  Age: 77 Year
  Sex: Male
  Weight: 77.1115 kg

DRUGS (1)
  1. FLOMAX [Suspect]
     Indication: NEPHROLITHIASIS
     Dosage: ONE PER DAY, PO
     Route: 048
     Dates: start: 20120502, end: 20120505

REACTIONS (4)
  - SPINAL DISORDER [None]
  - CONCUSSION [None]
  - FALL [None]
  - LOSS OF CONSCIOUSNESS [None]
